FAERS Safety Report 12092821 (Version 1)
Quarter: 2016Q1

REPORT INFORMATION
  Report Type: Spontaneous
  Country: US (occurrence: US)
  Receive Date: 20160219
  Receipt Date: 20160219
  Transmission Date: 20160526
  Serious: No
  Sender: FDA-Public Use
  Company Number: US-009507513-2011SP035342

PATIENT
  Age: 26 Year
  Sex: Female
  Weight: 122.47 kg

DRUGS (3)
  1. NUVARING [Suspect]
     Active Substance: ETHINYL ESTRADIOL\ETONOGESTREL
     Dosage: 3 WEEKS IN, 1 WEEK OUT, 1 DF
     Route: 067
     Dates: start: 20160121
  2. METFORMIN [Concomitant]
     Active Substance: METFORMIN HYDROCHLORIDE
     Dosage: 500 MG, ONCE DAILY
  3. NUVARING [Suspect]
     Active Substance: ETHINYL ESTRADIOL\ETONOGESTREL
     Indication: CONTRACEPTION
     Dosage: 3 WEEKS IN 1 WEEK OUT
     Route: 067
     Dates: start: 2009

REACTIONS (5)
  - Hypomenorrhoea [Not Recovered/Not Resolved]
  - Menstruation delayed [Not Recovered/Not Resolved]
  - Vaginal haemorrhage [Unknown]
  - Muscle spasms [Unknown]
  - Haemorrhage [Unknown]

NARRATIVE: CASE EVENT DATE: 201105
